FAERS Safety Report 13009998 (Version 3)
Quarter: 2017Q3

REPORT INFORMATION
  Report Type: Spontaneous
  Country: JP (occurrence: JP)
  Receive Date: 20161208
  Receipt Date: 20170713
  Transmission Date: 20171127
  Serious: Yes (Other)
  Sender: FDA-Public Use
  Company Number: PHJP2016JP034939

PATIENT
  Age: 77 Year
  Sex: Female

DRUGS (2)
  1. ZOMETA [Suspect]
     Active Substance: ZOLEDRONIC ACID
     Indication: METASTASES TO BONE
     Dosage: UNK
     Route: 041
     Dates: start: 200808, end: 201404
  2. ZOMETA [Suspect]
     Active Substance: ZOLEDRONIC ACID
     Indication: BREAST CANCER

REACTIONS (4)
  - Osteonecrosis of jaw [Unknown]
  - Osteolysis [Unknown]
  - Device related infection [Unknown]
  - Exposed bone in jaw [Unknown]

NARRATIVE: CASE EVENT DATE: 201104
